FAERS Safety Report 13626535 (Version 1)
Quarter: 2017Q2

REPORT INFORMATION
  Report Type: Spontaneous
  Country: BR (occurrence: BR)
  Receive Date: 20170608
  Receipt Date: 20170608
  Transmission Date: 20170830
  Serious: Yes (Other)
  Sender: FDA-Public Use
  Company Number: BR-PFIZER INC-2016498145

PATIENT
  Age: 64 Year
  Sex: Female

DRUGS (1)
  1. XALATAN [Suspect]
     Active Substance: LATANOPROST
     Dosage: UNK
     Dates: end: 201603

REACTIONS (2)
  - Cataract [Unknown]
  - Anxiety [Unknown]

NARRATIVE: CASE EVENT DATE: 201603
